FAERS Safety Report 17770999 (Version 4)
Quarter: 2020Q4

REPORT INFORMATION
  Report Type: Spontaneous
  Country: US (occurrence: US)
  Receive Date: 20200512
  Receipt Date: 20201125
  Transmission Date: 20210113
  Serious: No
  Sender: FDA-Public Use
  Company Number: US-PFIZER INC-2019255636

PATIENT
  Age: 65 Year
  Sex: Female
  Weight: 114.3 kg

DRUGS (6)
  1. LYRICA [Suspect]
     Active Substance: PREGABALIN
     Indication: INFLAMMATION
     Dosage: 50 MG, 2X/DAY
     Route: 048
     Dates: start: 201812
  2. LYRICA [Suspect]
     Active Substance: PREGABALIN
     Dosage: 1 CAPSULE (150 MG) WITH 75 MG FOR A DOSE OF 225 MG BID (TWO TIMES A DAY)
     Route: 048
  3. PREGABALIN. [Concomitant]
     Active Substance: PREGABALIN
     Dosage: ONE CAPSULE (75 MG) AT BED TIME WITH 150 MG CAPSULE FOR A DOSE OF 225 MG QPM (EVERY AFTER NOON)
     Route: 048
  4. LYRICA [Suspect]
     Active Substance: PREGABALIN
     Dosage: 225 MG, 2X/DAY (1 CAPSULE (150 MG), TAKE WITH 75 MG FOR A DOSE OF 225 BID (TWICE A DAY))
     Route: 048
  5. PREGABALIN. [Concomitant]
     Active Substance: PREGABALIN
     Dosage: 75 MG, 2X/DAY
     Route: 048
  6. LYRICA [Suspect]
     Active Substance: PREGABALIN
     Indication: ARTHRITIS
     Dosage: 150 MG, 2X/DAY
     Route: 048

REACTIONS (3)
  - Product use in unapproved indication [Unknown]
  - Off label use [Unknown]
  - Withdrawal syndrome [Unknown]

NARRATIVE: CASE EVENT DATE: 201812
